FAERS Safety Report 9034627 (Version 3)
Quarter: 2013Q1

REPORT INFORMATION
  Report Type: Spontaneous
  Country: GB (occurrence: None)
  Receive Date: 20130115
  Receipt Date: 20130228
  Transmission Date: 20140127
  Serious: Yes (Hospitalization)
  Sender: FDA-Public Use
  Company Number: GB-DEXPHARM-20122112

PATIENT
  Age: 74 Year
  Sex: Female

DRUGS (13)
  1. OMEPRAZOLE [Suspect]
  2. ADCAL-D3 [Concomitant]
  3. BENZYDAMINE [Concomitant]
  4. FOLIC ACID [Concomitant]
  5. FUROSEMIDE [Concomitant]
  6. LACTULOSE [Concomitant]
  7. MULTIVITAMIN [Concomitant]
  8. PANCREATIN [Concomitant]
  9. PHYTOMENADIONE [Concomitant]
  10. SPIRINOLACTONE [Concomitant]
  11. CIPROFLOXACIN [Suspect]
     Route: 048
     Dates: start: 20110215, end: 20110303
  12. TAZOCIN [Suspect]
     Route: 042
     Dates: start: 20110211, end: 20110215
  13. PIPERACILLIN AND TAZOBACTAM [Suspect]
     Route: 042
     Dates: end: 20110504

REACTIONS (5)
  - Diarrhoea [None]
  - Intestinal dilatation [None]
  - Clostridium difficile infection [None]
  - Weight decreased [None]
  - Jaundice [None]
